FAERS Safety Report 23017197 (Version 1)
Quarter: 2023Q4

REPORT INFORMATION
  Report Type: Spontaneous
  Country: CN (occurrence: None)
  Receive Date: 20231003
  Receipt Date: 20231003
  Transmission Date: 20240110
  Serious: Yes (Hospitalization, Other)
  Sender: FDA-Public Use
  Company Number: 2023A221704

PATIENT
  Age: 60 Year
  Sex: Female

DRUGS (2)
  1. IMFINZI [Suspect]
     Active Substance: DURVALUMAB
     Indication: Gallbladder cancer
  2. IMFINZI [Suspect]
     Active Substance: DURVALUMAB
     Indication: Metastatic neoplasm

REACTIONS (2)
  - Hepatic function abnormal [Unknown]
  - Hepatitis [Unknown]
